FAERS Safety Report 5780076-X (Version None)
Quarter: 2008Q2

REPORT INFORMATION
  Report Type: 
  Country: None (occurrence: None)
  Receive Date: 20080620
  Receipt Date: 20080612
  Transmission Date: 20081010
  Serious: Yes (Other)
  Sender: FDA-Public Use
  Company Number: US-KINGPHARMUSA00001-K200800667

PATIENT

DRUGS (7)
  1. ALTACE [Suspect]
     Indication: HYPERTENSION
     Dosage: 5-10 MG, QD
     Route: 048
  2. ALTACE [Suspect]
     Dosage: 10-20 MG, QD
     Dates: end: 20080601
  3. CLONAZEPAM [Concomitant]
  4. NOZEPAM  /00040901/ [Concomitant]
  5. TAZEPAM [Concomitant]
  6. CARDIKET [Concomitant]
     Indication: MYOCARDIAL INFARCTION
  7. VINPOCETINE [Concomitant]
     Indication: MYOCARDIAL INFARCTION

REACTIONS (4)
  - DISORIENTATION [None]
  - HEADACHE [None]
  - LOSS OF CONSCIOUSNESS [None]
  - PAIN IN EXTREMITY [None]
